FAERS Safety Report 20524767 (Version 1)
Quarter: 2022Q1

REPORT INFORMATION
  Report Type: Spontaneous
  Country: None (occurrence: US)
  Receive Date: 20220228
  Receipt Date: 20220228
  Transmission Date: 20220424
  Serious: No
  Sender: FDA-Public Use
  Company Number: US-Acacia Pharma Limited-2126269

PATIENT

DRUGS (1)
  1. BYFAVO [Suspect]
     Active Substance: REMIMAZOLAM BESYLATE
     Indication: Product used for unknown indication

REACTIONS (1)
  - Drug ineffective [Unknown]
